FAERS Safety Report 11284438 (Version 2)
Quarter: 2015Q3

REPORT INFORMATION
  Report Type: Spontaneous
  Country: DE (occurrence: DE)
  Receive Date: 20150720
  Receipt Date: 20150810
  Transmission Date: 20151125
  Serious: Yes (Hospitalization, Other)
  Sender: FDA-Public Use
  Company Number: DE-TEVA-577355GER

PATIENT
  Age: 76 Year
  Sex: Male

DRUGS (3)
  1. PREDNISOLONE RATIOPHARM 50 MG TABLETS [Suspect]
     Active Substance: PREDNISOLONE
     Indication: ASTHMA
     Dosage: 100 MILLIGRAM DAILY; HIGH DOSES FOR ASTHMA THERAPY
     Route: 048
  2. LEVODOPA [Concomitant]
     Active Substance: LEVODOPA
     Indication: PARKINSON^S DISEASE
     Route: 065
  3. SELEGILIN [Concomitant]
     Active Substance: SELEGILINE
     Indication: PARKINSON^S DISEASE
     Route: 065

REACTIONS (2)
  - Myalgia [Not Recovered/Not Resolved]
  - Paralysis [Recovered/Resolved]

NARRATIVE: CASE EVENT DATE: 20150702
